FAERS Safety Report 23148683 (Version 3)
Quarter: 2024Q1

REPORT INFORMATION
  Report Type: Spontaneous
  Country: US (occurrence: US)
  Receive Date: 20231106
  Receipt Date: 20240216
  Transmission Date: 20240409
  Serious: Yes (Other)
  Sender: FDA-Public Use
  Company Number: US-BIOVITRUM-2023-US-017522

PATIENT
  Age: 7 Month
  Sex: Male

DRUGS (3)
  1. SYNAGIS [Suspect]
     Active Substance: PALIVIZUMAB
     Indication: Premature baby
     Dosage: EVERY 28DAYS - 30DAYS
     Route: 030
     Dates: start: 20230724
  2. SYNAGIS [Suspect]
     Active Substance: PALIVIZUMAB
     Dosage: EVERY 28DAYS - 30DAYS
     Route: 030
     Dates: start: 20230724, end: 20240118
  3. SYNAGIS [Suspect]
     Active Substance: PALIVIZUMAB
     Dosage: EVERY 28DAYS - 30DAYS
     Route: 030
     Dates: start: 20231222

REACTIONS (2)
  - Bronchiolitis [Unknown]
  - Nasopharyngitis [Unknown]

NARRATIVE: CASE EVENT DATE: 20240209
